FAERS Safety Report 9882372 (Version 4)
Quarter: 2014Q3

REPORT INFORMATION
  Report Type: Report from Study
  Country: FR (occurrence: FR)
  Receive Date: 20140207
  Receipt Date: 20140715
  Transmission Date: 20150326
  Serious: Yes (Death, Hospitalization)
  Sender: FDA-Public Use
  Company Number: FR-GLAXOSMITHKLINE-B0965931A

PATIENT
  Age: 58 Year
  Sex: Female
  Weight: 35 kg

DRUGS (3)
  1. XANAX [Concomitant]
     Active Substance: ALPRAZOLAM
     Indication: INSOMNIA
     Route: 048
     Dates: start: 2013
  2. PAZOPANIB [Suspect]
     Active Substance: PAZOPANIB
     Indication: NEOPLASM MALIGNANT
     Dosage: 800MG PER DAY
     Route: 048
     Dates: start: 20131120
  3. EFFERALGAN [Concomitant]
     Active Substance: ACETAMINOPHEN
     Indication: NECK PAIN
     Route: 048
     Dates: start: 2013

REACTIONS (1)
  - Atrial tachycardia [Fatal]

NARRATIVE: CASE EVENT DATE: 20140125
